FAERS Safety Report 6714148-X (Version None)
Quarter: 2010Q2

REPORT INFORMATION
  Report Type: 
  Country: None (occurrence: None)
  Receive Date: 20100506
  Receipt Date: 20100406
  Transmission Date: 20101027
  Serious: Yes (Other)
  Sender: FDA-Public Use
  Company Number: FR-WYE-H13868710

PATIENT
  Age: 57 Year
  Sex: Male

DRUGS (1)
  1. INIPOMP [Suspect]
     Indication: ABDOMINAL PAIN UPPER
     Dosage: UNKNOWN
     Route: 065
     Dates: start: 20090101

REACTIONS (1)
  - PROSTATE CANCER [None]
